FAERS Safety Report 13740325 (Version 1)
Quarter: 2017Q3

REPORT INFORMATION
  Report Type: Spontaneous
  Country: GB (occurrence: GB)
  Receive Date: 20170711
  Receipt Date: 20170711
  Transmission Date: 20171127
  Serious: No
  Sender: FDA-Public Use
  Company Number: GB-MALLINCKRODT-T201701681

PATIENT
  Age: 17 Year
  Sex: Female

DRUGS (5)
  1. TECHNESCAN LYOMAA (TECHNETIUM TC-99M ALBUMIN AGGREGATED) [Suspect]
     Active Substance: TECHNETIUM TC-99M ALBUMIN AGGREGATED
     Indication: VENTILATION/PERFUSION SCAN
     Dosage: UNK UNK, SINGLE
     Route: 042
     Dates: start: 20170301, end: 20170301
  2. ULTRA-TECHNEKOW FM [Suspect]
     Active Substance: TECHNETIUM TC-99M SODIUM PERTECHNETATE
     Indication: VENTILATION/PERFUSION SCAN
     Dosage: 73 MBQ, SINGLE
     Route: 042
     Dates: start: 20170301, end: 20170301
  3. TECHNESCAN LYOMAA (TECHNETIUM TC-99M ALBUMIN AGGREGATED) [Suspect]
     Active Substance: TECHNETIUM TC-99M ALBUMIN AGGREGATED
     Dosage: UNK, SINGLE
     Route: 042
     Dates: start: 20170306, end: 20170306
  4. TECHNESCAN MAG3 [Suspect]
     Active Substance: TECHNETIUM TC-99M TIATIDE
     Indication: VENTILATION/PERFUSION SCAN
     Dosage: UNK UNK, SINGLE
     Route: 042
     Dates: start: 20170301, end: 20170301
  5. ULTRA-TECHNEKOW FM [Suspect]
     Active Substance: TECHNETIUM TC-99M SODIUM PERTECHNETATE
     Dosage: 85 MBQ, SINGLE
     Route: 042
     Dates: start: 20170306, end: 20170306

REACTIONS (3)
  - Radiation overdose [Unknown]
  - Drug dispensing error [Unknown]
  - Wrong drug administered [Unknown]

NARRATIVE: CASE EVENT DATE: 20170301
